FAERS Safety Report 7898269-4 (Version None)
Quarter: 2011Q4

REPORT INFORMATION
  Report Type: 
  Country: None (occurrence: None)
  Receive Date: 20111103
  Receipt Date: 20111026
  Transmission Date: 20120403
  Serious: Yes (Disabling)
  Sender: FDA-Public Use
  Company Number: AUR-APL-2011-05287

PATIENT
  Age: 48 Year
  Sex: Female
  Weight: 57 kg

DRUGS (3)
  1. VENTOLIN [Concomitant]
  2. ACETAMINOPHEN W/ CODEINE [Concomitant]
  3. CITALOPRAM HYDROBROMIDE [Suspect]
     Indication: PRODUCT USED FOR UNKNOWN INDICATION
     Dosage: (20 MG),ORAL
     Route: 048
     Dates: start: 20110922

REACTIONS (10)
  - HYPERSENSITIVITY [None]
  - MEMORY IMPAIRMENT [None]
  - DRY MOUTH [None]
  - APHASIA [None]
  - PARAESTHESIA [None]
  - ABDOMINAL PAIN [None]
  - ABASIA [None]
  - AMNESIA [None]
  - HYPOAESTHESIA [None]
  - TREMOR [None]
